FAERS Safety Report 7930010-9 (Version None)
Quarter: 2011Q4

REPORT INFORMATION
  Report Type: 
  Country: None (occurrence: None)
  Receive Date: 20111118
  Receipt Date: 20111118
  Transmission Date: 20120403
  Serious: Yes (Other)
  Sender: FDA-Public Use
  Company Number: None

PATIENT
  Sex: Male

DRUGS (1)
  1. ENBREL [Suspect]
     Dosage: 50MG TWICE A WEEK SQ
     Route: 058
     Dates: start: 20111101, end: 20111108

REACTIONS (2)
  - URTICARIA [None]
  - HYPERSENSITIVITY [None]
